FAERS Safety Report 13256978 (Version 2)
Quarter: 2017Q2

REPORT INFORMATION
  Report Type: Report from Study
  Country: AU (occurrence: AU)
  Receive Date: 20170221
  Receipt Date: 20170503
  Transmission Date: 20170830
  Serious: Yes (Hospitalization, Other)
  Sender: FDA-Public Use
  Company Number: AU-REGENERON PHARMACEUTICALS, INC.-2016-23395

PATIENT

DRUGS (1)
  1. EYLEA [Suspect]
     Active Substance: AFLIBERCEPT
     Indication: NEOVASCULAR AGE-RELATED MACULAR DEGENERATION
     Dosage: 2 MG, EVERY 6 WEEKS
     Route: 031
     Dates: start: 2016

REACTIONS (7)
  - Foreign body sensation in eyes [Recovered/Resolved]
  - Vision blurred [Recovered/Resolved]
  - Fear of injection [Recovered/Resolved]
  - Visual impairment [Recovered/Resolved]
  - Cardiac operation [Recovering/Resolving]
  - Visual impairment [Recovering/Resolving]
  - Pain [Unknown]

NARRATIVE: CASE EVENT DATE: 20160727
